FAERS Safety Report 8586912-6 (Version None)
Quarter: 2012Q3

REPORT INFORMATION
  Report Type: 
  Country: None (occurrence: None)
  Receive Date: 20120810
  Receipt Date: 20120801
  Transmission Date: 20120928
  Serious: Yes (Hospitalization, Disabling)
  Sender: FDA-Public Use
  Company Number: CHPA2012BR017195

PATIENT
  Age: 65 Year
  Sex: Male

DRUGS (1)
  1. ACETAMINOPHEN, ASPIRIN AND CAFFEINE [Suspect]
     Indication: HEADACHE
     Dosage: 1-2 DF, PRN, FOR 15 YEARS
     Route: 048

REACTIONS (5)
  - DRUG INEFFECTIVE [None]
  - DYSPEPSIA [None]
  - BLINDNESS UNILATERAL [None]
  - CATARACT [None]
  - PAROSMIA [None]
